FAERS Safety Report 9053501 (Version 5)
Quarter: 2014Q1

REPORT INFORMATION
  Report Type: Spontaneous
  Country: US (occurrence: US)
  Receive Date: 20130208
  Receipt Date: 20140127
  Transmission Date: 20141002
  Serious: Yes (Hospitalization, Other)
  Sender: FDA-Public Use
  Company Number: PHEH2013US002952

PATIENT
  Sex: Female

DRUGS (7)
  1. DIOVAN HCT [Suspect]
     Indication: HYPERTENSION
     Dosage: 1 DF, (160/12.5 MG) BID
     Route: 048
     Dates: start: 2009
  2. DIOVAN HCT [Suspect]
     Dosage: 1 DF, (320MG VALS AND 12.5 MG HCTZ) DAILY
     Route: 048
  3. POTASSIUM CHLORIDE [Suspect]
     Dosage: UNK UKN, UNK
  4. CARVEDILOL [Concomitant]
     Indication: BLOOD PRESSURE ABNORMAL
     Dosage: 25 MG, UNK
  5. GLYBURIDE [Concomitant]
     Indication: DIABETES MELLITUS
     Dosage: UNK UKN, UNK
  6. MULTIVITAMIN [Concomitant]
     Indication: SUPPLEMENTATION THERAPY
     Dosage: UNK UKN, UNK
  7. ASA [Concomitant]
     Indication: PROPHYLAXIS
     Dosage: 81 MG, DAILY

REACTIONS (33)
  - Ovarian mass [Unknown]
  - Colon injury [Unknown]
  - Large intestinal haemorrhage [Unknown]
  - Blood pressure inadequately controlled [Unknown]
  - Neoplasm [Unknown]
  - Gastrointestinal injury [Unknown]
  - Myocardial infarction [Unknown]
  - Heart rate abnormal [Unknown]
  - Feeling abnormal [Unknown]
  - Finger deformity [Unknown]
  - Fall [Unknown]
  - Nocturia [Unknown]
  - Tremor [Unknown]
  - Memory impairment [Unknown]
  - Dysgeusia [Unknown]
  - Dysgraphia [Unknown]
  - Gout [Unknown]
  - Hypoaesthesia [Unknown]
  - Constipation [Unknown]
  - Visual impairment [Unknown]
  - Dry mouth [Unknown]
  - Dyspepsia [Unknown]
  - Influenza [Unknown]
  - Oedema peripheral [Unknown]
  - Myalgia [Unknown]
  - Blood potassium increased [Unknown]
  - Muscle spasms [Unknown]
  - Diarrhoea [Unknown]
  - Nausea [Unknown]
  - Dizziness [Unknown]
  - Back pain [Unknown]
  - Abdominal pain [Unknown]
  - Headache [Unknown]
